FAERS Safety Report 9129133 (Version 1)
Quarter: 2013Q1

REPORT INFORMATION
  Report Type: Spontaneous
  Country: CA (occurrence: CA)
  Receive Date: 20130125
  Receipt Date: 20130125
  Transmission Date: 20140127
  Serious: Yes (Hospitalization, Disabling)
  Sender: FDA-Public Use
  Company Number: CA-B.I. PHARMACEUTICALS,INC./RIDGEFIELD-2013-CN-00091CN

PATIENT
  Age: 89 Year
  Sex: Female
  Weight: 76.2 kg

DRUGS (6)
  1. PRADAX [Suspect]
     Dosage: 220 MG
     Route: 048
  2. ATORVASTATIN CALCIUM [Concomitant]
  3. COZAAR [Concomitant]
  4. IRON [Concomitant]
  5. PANTOLOC [Concomitant]
  6. SLOW K [Concomitant]

REACTIONS (2)
  - Cerebrovascular accident [Unknown]
  - Drug ineffective [Unknown]
